FAERS Safety Report 12220417 (Version 2)
Quarter: 2016Q2

REPORT INFORMATION
  Report Type: Spontaneous
  Country: US (occurrence: US)
  Receive Date: 20160330
  Receipt Date: 20160425
  Transmission Date: 20160815
  Serious: Yes (Death)
  Sender: FDA-Public Use
  Company Number: US-ROCHE-1733526

PATIENT
  Age: 75 Year
  Sex: Male

DRUGS (1)
  1. ZELBORAF [Suspect]
     Active Substance: VEMURAFENIB
     Indication: MALIGNANT MELANOMA
     Dosage: 4 CAPSULES TWICE DAILY
     Route: 048
     Dates: start: 20151221

REACTIONS (1)
  - Malignant melanoma stage IV [Fatal]

NARRATIVE: CASE EVENT DATE: 20160312
